FAERS Safety Report 24842837 (Version 1)
Quarter: 2025Q1

REPORT INFORMATION
  Report Type: Report from Study
  Country: US (occurrence: US)
  Receive Date: 20250115
  Receipt Date: 20250115
  Transmission Date: 20250408
  Serious: Yes (Other)
  Sender: HRA PHARMA
  Company Number: US-ORG100014127-2024000189

PATIENT
  Age: 57 Year
  Sex: Male

DRUGS (3)
  1. LYSODREN [Suspect]
     Active Substance: MITOTANE
     Indication: Adrenal gland cancer
     Dosage: 4 TABLETS TWICE DAILY
     Route: 048
     Dates: start: 20240309
  2. LYSODREN [Suspect]
     Active Substance: MITOTANE
     Indication: Adrenal gland cancer
     Dosage: 2 TABLETS TWICE DAILY
     Route: 048
     Dates: end: 2024
  3. LOSARTAN POTASSIUM [Concomitant]
     Active Substance: LOSARTAN POTASSIUM
     Indication: Product used for unknown indication

REACTIONS (1)
  - Malignant neoplasm progression [Not Recovered/Not Resolved]
